FAERS Safety Report 8547867-3 (Version None)
Quarter: 2012Q3

REPORT INFORMATION
  Report Type: 
  Country: None (occurrence: None)
  Receive Date: 20120727
  Receipt Date: 20120413
  Transmission Date: 20120928
  Serious: No
  Sender: FDA-Public Use
  Company Number: US-ASTRAZENECA-2011SE15156

PATIENT
  Age: 54 Year
  Sex: Female
  Weight: 90.7 kg

DRUGS (43)
  1. SEROQUEL [Suspect]
     Route: 048
  2. SEROQUEL [Suspect]
     Route: 048
  3. SEROQUEL [Suspect]
     Dosage: 100 MG AT LUNCH AND 400 MG AT BEDTIME
     Route: 048
  4. SEROQUEL [Suspect]
     Dosage: 100 MG AT LUNCH AND 400 MG AT BEDTIME
     Route: 048
  5. SEROQUEL [Suspect]
     Route: 048
  6. SEROQUEL [Suspect]
     Dosage: 200 MG AND 300 MG
     Route: 048
  7. SEROQUEL [Suspect]
     Dosage: 100 MG AT LUNCH AND 400 MG AT BEDTIME
     Route: 048
  8. METOPROLOL TARTRATE [Concomitant]
     Indication: BLOOD PRESSURE
     Route: 048
     Dates: start: 20080101
  9. VITAMIN TAB [Concomitant]
  10. SEROQUEL [Suspect]
     Dosage: 900 MG TOTAL DAILY
     Route: 048
     Dates: start: 19990101, end: 20080101
  11. SEROQUEL [Suspect]
     Route: 048
  12. SEROQUEL [Suspect]
     Dosage: 200 MG AND 300 MG
     Route: 048
  13. SEROQUEL [Suspect]
     Dosage: 900 MG TOTAL DAILY
     Route: 048
     Dates: start: 19990101, end: 20080101
  14. SEROQUEL [Suspect]
     Dosage: TOTAL DAILY: CUTTING A 100MG TABLET IN HALF
     Route: 048
  15. ADVAIR DISKUS 100/50 [Concomitant]
  16. LISINOPRIL [Concomitant]
     Indication: BLOOD PRESSURE
     Route: 048
     Dates: start: 20110101
  17. IPRATROPIUM BROMIDE [Concomitant]
     Indication: CHRONIC OBSTRUCTIVE PULMONARY DISEASE
     Route: 055
  18. SEROQUEL [Suspect]
     Dosage: TOTAL DAILY: CUTTING A 100MG TABLET IN HALF
     Route: 048
  19. SEROQUEL [Suspect]
     Dosage: TOTAL DAILY: CUTTING A 100MG TABLET IN HALF
     Route: 048
  20. UNSPECIFIED BETA BLOCKER [Suspect]
     Route: 065
  21. HUMALOG [Concomitant]
     Indication: DIABETES MELLITUS
     Route: 058
     Dates: start: 20080101
  22. TRILIPIX [Concomitant]
     Indication: BLOOD TRIGLYCERIDES ABNORMAL
     Route: 048
  23. TRICOR [Concomitant]
  24. METFORMIN HYDROCHLORIDE [Concomitant]
     Indication: DIABETES MELLITUS
     Route: 048
     Dates: start: 20030101
  25. SEROQUEL [Suspect]
     Indication: PANIC ATTACK
     Route: 048
     Dates: start: 19950101
  26. SEROQUEL [Suspect]
     Indication: DEPRESSION
     Route: 048
     Dates: start: 19950101
  27. SEROQUEL [Suspect]
     Dosage: 900 MG TOTAL DAILY
     Route: 048
     Dates: start: 19990101, end: 20080101
  28. SEROQUEL [Suspect]
     Route: 048
  29. SEROQUEL [Suspect]
     Route: 048
  30. BUDESONIDE [Concomitant]
     Indication: CHRONIC OBSTRUCTIVE PULMONARY DISEASE
     Route: 055
  31. ALBUTEROL [Concomitant]
     Indication: CHRONIC OBSTRUCTIVE PULMONARY DISEASE
     Route: 055
  32. GABAPENTIN [Concomitant]
     Indication: MOOD SWINGS
     Route: 048
  33. CYMBALTA [Concomitant]
     Indication: MOOD SWINGS
  34. LOVASTATIN [Concomitant]
     Indication: BLOOD CHOLESTEROL INCREASED
     Route: 048
  35. FUROSEMIDE [Concomitant]
     Indication: FLUID RETENTION
     Dates: start: 20080101
  36. LISINOPRIL [Concomitant]
     Indication: DIABETES MELLITUS
     Route: 048
     Dates: start: 20110101
  37. SEROQUEL [Suspect]
     Indication: BIPOLAR I DISORDER
     Route: 048
     Dates: start: 19950101
  38. SEROQUEL [Suspect]
     Route: 048
  39. SEROQUEL [Suspect]
     Route: 048
  40. SEROQUEL [Suspect]
     Route: 048
  41. SEROQUEL [Suspect]
     Dosage: 200 MG AND 300 MG
     Route: 048
  42. CYMBALTA [Concomitant]
     Dosage: 100 MG AT LUNCH AND 400 MG AT DINNER
     Route: 048
  43. NITROGLYCERIN [Concomitant]
     Indication: CARDIAC DISORDER
     Route: 048

REACTIONS (8)
  - HEART RATE ABNORMAL [None]
  - WEIGHT INCREASED [None]
  - INTENTIONAL DRUG MISUSE [None]
  - BLOOD CHOLESTEROL INCREASED [None]
  - PALPITATIONS [None]
  - HYPERTENSION [None]
  - BLOOD GLUCOSE ABNORMAL [None]
  - DIABETES MELLITUS [None]
